FAERS Safety Report 4502815-8 (Version None)
Quarter: 2004Q4

REPORT INFORMATION
  Report Type: 
  Country: None (occurrence: None)
  Receive Date: 20041112
  Receipt Date: 20041101
  Transmission Date: 20050328
  Serious: Yes (Hospitalization)
  Sender: FDA-Public Use
  Company Number: 2004-11-0128

PATIENT
  Age: 38 Year
  Sex: Female

DRUGS (9)
  1. PAXIL [Suspect]
     Indication: BIPOLAR DISORDER
     Dosage: SEE IMAGE
     Route: 048
     Dates: start: 20040914, end: 20041004
  2. PAXIL [Suspect]
     Indication: BIPOLAR DISORDER
     Dosage: SEE IMAGE
     Route: 048
     Dates: start: 20040914, end: 20041027
  3. PAXIL [Suspect]
     Indication: BIPOLAR DISORDER
     Dosage: SEE IMAGE
     Route: 048
     Dates: start: 20041005, end: 20041027
  4. PEG-INTRON [Suspect]
     Indication: HEPATITIS C
     Dosage: 120 MCG QWK SUBCUTANEOUS
     Route: 058
     Dates: start: 20040806, end: 20041027
  5. REBETOL [Suspect]
     Indication: HEPATITIS C
     Dosage: 1000  MG QD ORAL
     Route: 048
     Dates: start: 20040816, end: 20041027
  6. PROTONIX [Concomitant]
  7. ROBINUL FORTE TABLETS [Concomitant]
  8. TRAZODONE HYDROCHLORIDE TABLETS [Concomitant]
  9. WELCHOL (COLESEVELAM HCL) TABLETS [Concomitant]

REACTIONS (5)
  - DRUG INTERACTION [None]
  - INCOHERENT [None]
  - INSOMNIA [None]
  - MANIA [None]
  - MENTAL DISORDER [None]
